FAERS Safety Report 7065174-5 (Version None)
Quarter: 2010Q4

REPORT INFORMATION
  Report Type: 
  Country: None (occurrence: None)
  Receive Date: 20101019
  Receipt Date: 20101004
  Transmission Date: 20110411
  Serious: Yes (Hospitalization, Other)
  Sender: FDA-Public Use
  Company Number: ACO_02468_2010

PATIENT
  Age: 46 Year
  Sex: Female
  Weight: 113.3993 kg

DRUGS (13)
  1. AMPYRA [Suspect]
     Indication: GAIT DISTURBANCE
     Dosage: (10 MG BID ORAL) ; (10 MG QD ORAL)
     Route: 048
     Dates: start: 20100715, end: 20100805
  2. AMPYRA [Suspect]
     Indication: MULTIPLE SCLEROSIS
     Dosage: (10 MG BID ORAL) ; (10 MG QD ORAL)
     Route: 048
     Dates: start: 20100715, end: 20100805
  3. AMPYRA [Suspect]
     Indication: GAIT DISTURBANCE
     Dosage: (10 MG BID ORAL) ; (10 MG QD ORAL)
     Route: 048
     Dates: start: 20100806
  4. AMPYRA [Suspect]
     Indication: MULTIPLE SCLEROSIS
     Dosage: (10 MG BID ORAL) ; (10 MG QD ORAL)
     Route: 048
     Dates: start: 20100806
  5. KEPPRA [Concomitant]
  6. EFFEXOR [Concomitant]
  7. LASIX [Concomitant]
  8. SPIRONOLACTONE [Concomitant]
  9. PRAVACHOL [Concomitant]
  10. THYROID THERAPY [Concomitant]
  11. DETROL [Concomitant]
  12. REBIF [Concomitant]
  13. PROVIGIL [Concomitant]

REACTIONS (3)
  - CYSTITIS KLEBSIELLA [None]
  - MUSCLE SPASMS [None]
  - PAIN [None]
